FAERS Safety Report 14534593 (Version 1)
Quarter: 2018Q1

REPORT INFORMATION
  Report Type: Spontaneous
  Country: US (occurrence: US)
  Receive Date: 20180215
  Receipt Date: 20180215
  Transmission Date: 20180509
  Serious: Yes (Other)
  Sender: FDA-Public Use
  Company Number: US-GUERBET-US-20180033

PATIENT
  Age: 12 Year
  Sex: Male

DRUGS (1)
  1. LIPIODOL [Suspect]
     Active Substance: ETHIODIZED OIL
     Indication: THERAPEUTIC EMBOLISATION
     Dosage: LESS THAN 10ML
     Route: 065

REACTIONS (2)
  - Cerebral microembolism [Recovering/Resolving]
  - Product use in unapproved indication [Recovering/Resolving]
